FAERS Safety Report 6784798-3 (Version None)
Quarter: 2010Q2

REPORT INFORMATION
  Report Type: 
  Country: None (occurrence: None)
  Receive Date: 20100622
  Receipt Date: 20100610
  Transmission Date: 20101027
  Serious: Yes (Other)
  Sender: FDA-Public Use
  Company Number: PHHY2010BR37988

PATIENT
  Sex: Male

DRUGS (6)
  1. RASILEZ [Suspect]
     Dosage: 300 MG, UNK
     Route: 048
  2. ATENOLOL [Concomitant]
     Dosage: 100 MG, UNK
  3. LOSARTAN [Concomitant]
     Dosage: 100 MG, UNK
  4. HYDROCHLOROTHIAZIDE [Concomitant]
     Dosage: 50 MG, UNK
  5. CAPTORIL - SLOW RELEASE [Concomitant]
     Dosage: 50 MG, UNK
  6. OMEPRAZOLE [Concomitant]
     Dosage: 20 MG, UNK

REACTIONS (3)
  - BLOOD PRESSURE INCREASED [None]
  - ENZYME ABNORMALITY [None]
  - INFARCTION [None]
